FAERS Safety Report 23558515 (Version 1)
Quarter: 2024Q1

REPORT INFORMATION
  Report Type: Spontaneous
  Country: IT (occurrence: IT)
  Receive Date: 20240223
  Receipt Date: 20240223
  Transmission Date: 20240410
  Serious: Yes (Hospitalization, Other)
  Sender: FDA-Public Use
  Company Number: None

PATIENT
  Age: 65 Year
  Sex: Male

DRUGS (3)
  1. ALPRAZOLAM [Suspect]
     Active Substance: ALPRAZOLAM
     Indication: Insomnia
     Dosage: TIME INTERVAL: TOTAL: TOOK 2 SIPS DIRECTLY FROM THE ALPRAZOLAM BOTTLE THE NIGHT BEFORE AND THE SA...
     Route: 048
  2. ISOPTIN [Concomitant]
     Active Substance: VERAPAMIL HYDROCHLORIDE
     Indication: Product used for unknown indication
     Route: 065
  3. HEPARIN [Concomitant]
     Active Substance: HEPARIN SODIUM
     Indication: Product used for unknown indication
     Dosage: EPARINA
     Route: 065

REACTIONS (2)
  - Drug abuse [Recovering/Resolving]
  - Sopor [Recovering/Resolving]

NARRATIVE: CASE EVENT DATE: 20230627
